FAERS Safety Report 11650103 (Version 1)
Quarter: 2015Q4

REPORT INFORMATION
  Report Type: Spontaneous
  Country: US (occurrence: US)
  Receive Date: 20151021
  Receipt Date: 20151021
  Transmission Date: 20160304
  Serious: Yes (Other)
  Sender: FDA-Public Use
  Company Number: US-BAYER-2015-446734

PATIENT
  Age: 83 Year
  Sex: Female
  Weight: 81.63 kg

DRUGS (2)
  1. AFRIN ORIGINAL [Suspect]
     Active Substance: OXYMETAZOLINE HYDROCHLORIDE
     Indication: SEASONAL ALLERGY
     Dosage: UNK,4-5 TIMES A DAY
  2. AFRIN ORIGINAL [Suspect]
     Active Substance: OXYMETAZOLINE HYDROCHLORIDE
     Indication: NASAL CONGESTION
     Dosage: UNK,5-6TIMES A DAY.

REACTIONS (5)
  - Nasal congestion [None]
  - Terminal insomnia [None]
  - Product use issue [None]
  - Drug dependence [None]
  - Nasal obstruction [None]
